FAERS Safety Report 16064189 (Version 1)
Quarter: 2019Q1

REPORT INFORMATION
  Report Type: Spontaneous
  Country: IT (occurrence: IT)
  Receive Date: 20190312
  Receipt Date: 20190312
  Transmission Date: 20190418
  Serious: Yes (Death)
  Sender: FDA-Public Use
  Company Number: IT-MYLANLABS-2019M1022425

PATIENT

DRUGS (2)
  1. IMATINIB. [Suspect]
     Active Substance: IMATINIB MESYLATE
     Indication: NEUROBLASTOMA
     Dosage: 170 MG/M2, BID (4 CYCLES)
     Route: 048
  2. IMATINIB. [Suspect]
     Active Substance: IMATINIB MESYLATE
     Dosage: 600 MILLIGRAM/SQ. METER, QD (300 MG/M2, BID)
     Route: 048

REACTIONS (4)
  - Product use in unapproved indication [Unknown]
  - Myelodysplastic syndrome [Fatal]
  - Second primary malignancy [Fatal]
  - Acute leukaemia [Fatal]
